FAERS Safety Report 18376093 (Version 2)
Quarter: 2020Q4

REPORT INFORMATION
  Report Type: Spontaneous
  Country: US (occurrence: US)
  Receive Date: 20201013
  Receipt Date: 20201122
  Transmission Date: 20210114
  Serious: No
  Sender: FDA-Public Use
  Company Number: US-JNJFOC-20201010871

PATIENT
  Age: 66 Year
  Sex: Female
  Weight: 49.03 kg

DRUGS (1)
  1. REMICADE [Suspect]
     Active Substance: INFLIXIMAB
     Indication: CROHN^S DISEASE
     Route: 042
     Dates: start: 202004, end: 20201007

REACTIONS (2)
  - Weight increased [Unknown]
  - Alopecia [Unknown]

NARRATIVE: CASE EVENT DATE: 202004
